FAERS Safety Report 18723532 (Version 2)
Quarter: 2022Q1

REPORT INFORMATION
  Report Type: Spontaneous
  Country: US (occurrence: US)
  Receive Date: 20210111
  Receipt Date: 20220330
  Transmission Date: 20220424
  Serious: Yes (Other)
  Sender: FDA-Public Use
  Company Number: US-GLAXOSMITHKLINE-US2021GSK004638

PATIENT
  Sex: Male

DRUGS (28)
  1. RANITIDINE [Suspect]
     Active Substance: RANITIDINE
     Indication: Dyspepsia
     Dosage: UNK UNK, QD
     Route: 065
     Dates: start: 199001, end: 201005
  2. RANITIDINE [Suspect]
     Active Substance: RANITIDINE
     Indication: Dyspepsia
     Dosage: UNK, QD
     Route: 065
     Dates: start: 199001, end: 201005
  3. RANITIDINE [Suspect]
     Active Substance: RANITIDINE
     Indication: Hyperchlorhydria
     Dosage: UNK
  4. RANITIDINE [Suspect]
     Active Substance: RANITIDINE
     Indication: Gastrooesophageal reflux disease
  5. ZANTAC [Suspect]
     Active Substance: RANITIDINE HYDROCHLORIDE
     Indication: Dyspepsia
     Dosage: UNK UNK, QD
     Route: 065
     Dates: start: 199001, end: 201005
  6. ZANTAC [Suspect]
     Active Substance: RANITIDINE HYDROCHLORIDE
     Indication: Dyspepsia
     Dosage: UNK UNK, QD
     Route: 065
     Dates: start: 199001, end: 201005
  7. ZANTAC [Suspect]
     Active Substance: RANITIDINE HYDROCHLORIDE
     Indication: Hyperchlorhydria
     Dosage: UNK
  8. ZANTAC [Suspect]
     Active Substance: RANITIDINE HYDROCHLORIDE
     Indication: Gastrooesophageal reflux disease
  9. ZANTAC [Suspect]
     Active Substance: RANITIDINE HYDROCHLORIDE
     Indication: Dyspepsia
     Dosage: UNK UNK, QD
     Route: 065
     Dates: start: 199001, end: 201005
  10. ZANTAC [Suspect]
     Active Substance: RANITIDINE HYDROCHLORIDE
     Indication: Dyspepsia
     Dosage: UNK UNK, QD
     Route: 065
     Dates: start: 199001, end: 201005
  11. ZANTAC [Suspect]
     Active Substance: RANITIDINE HYDROCHLORIDE
     Indication: Hyperchlorhydria
     Dosage: UNK
  12. ZANTAC [Suspect]
     Active Substance: RANITIDINE HYDROCHLORIDE
     Indication: Gastrooesophageal reflux disease
  13. RANITIDINE [Suspect]
     Active Substance: RANITIDINE
     Indication: Dyspepsia
     Dosage: UNK UNK, QD
     Route: 065
     Dates: start: 199001, end: 201005
  14. RANITIDINE [Suspect]
     Active Substance: RANITIDINE
     Indication: Dyspepsia
     Dosage: UNK UNK, QD
     Route: 065
     Dates: start: 199001, end: 201005
  15. RANITIDINE [Suspect]
     Active Substance: RANITIDINE
     Indication: Hyperchlorhydria
     Dosage: UNK, QD
     Route: 065
     Dates: start: 199001, end: 201005
  16. RANITIDINE [Suspect]
     Active Substance: RANITIDINE
     Indication: Gastrooesophageal reflux disease
  17. RANITIDINE [Suspect]
     Active Substance: RANITIDINE
     Indication: Dyspepsia
     Dosage: UNK, QD
     Route: 065
     Dates: start: 199001, end: 201005
  18. RANITIDINE [Suspect]
     Active Substance: RANITIDINE
     Indication: Dyspepsia
     Dosage: UNK, QD
     Route: 065
     Dates: start: 199001, end: 201005
  19. RANITIDINE [Suspect]
     Active Substance: RANITIDINE
     Indication: Hyperchlorhydria
     Dosage: UNK
  20. RANITIDINE [Suspect]
     Active Substance: RANITIDINE
     Indication: Gastrooesophageal reflux disease
  21. RANITIDINE [Suspect]
     Active Substance: RANITIDINE
     Indication: Dyspepsia
     Dosage: UNK, QD
     Route: 065
     Dates: start: 199001, end: 201005
  22. RANITIDINE [Suspect]
     Active Substance: RANITIDINE
     Indication: Dyspepsia
     Dosage: UNK, QD
     Route: 065
     Dates: start: 199001, end: 201005
  23. RANITIDINE [Suspect]
     Active Substance: RANITIDINE
     Indication: Hyperchlorhydria
     Dosage: UNK
  24. RANITIDINE [Suspect]
     Active Substance: RANITIDINE
     Indication: Gastrooesophageal reflux disease
  25. ZANTAC [Suspect]
     Active Substance: RANITIDINE HYDROCHLORIDE
     Indication: Dyspepsia
     Dosage: UNK UNK, QD
     Route: 065
     Dates: start: 199001, end: 201005
  26. ZANTAC [Suspect]
     Active Substance: RANITIDINE HYDROCHLORIDE
     Indication: Dyspepsia
     Dosage: UNK
  27. ZANTAC [Suspect]
     Active Substance: RANITIDINE HYDROCHLORIDE
     Indication: Hyperchlorhydria
     Dosage: UNK
  28. ZANTAC [Suspect]
     Active Substance: RANITIDINE HYDROCHLORIDE
     Indication: Gastrooesophageal reflux disease

REACTIONS (1)
  - Prostate cancer [Unknown]
